FAERS Safety Report 4513509-7 (Version None)
Quarter: 2004Q4

REPORT INFORMATION
  Report Type: 
  Country: None (occurrence: None)
  Receive Date: 20041130
  Receipt Date: 20041118
  Transmission Date: 20050328
  Serious: Yes (Hospitalization)
  Sender: FDA-Public Use
  Company Number: JP-BRISTOL-MYERS SQUIBB COMPANY-12775169

PATIENT
  Age: 42 Year
  Sex: Male

DRUGS (4)
  1. EFAVIRENZ CAPS [Suspect]
     Indication: HIV INFECTION
     Dosage: INTERRUPTED ON 02-FEB-2004, RESTARTED 17-FEB-2004
     Route: 048
     Dates: start: 20000606
  2. COMBIVIR [Suspect]
     Indication: HIV INFECTION
     Dosage: INTERRUPTED ON 02-FEB-2004, RESTARTED ON 17-FEB-2004.
     Route: 048
     Dates: start: 20000606
  3. MEFENAMIC ACID [Concomitant]
     Indication: HAEMOPHILIC ARTHRITIS
     Dosage: 2-3 CAPSULES DAILY
     Dates: start: 20030401
  4. COAGULATION FACTOR VIII [Concomitant]

REACTIONS (7)
  - ALANINE AMINOTRANSFERASE INCREASED [None]
  - AMNESIA [None]
  - ANAEMIA [None]
  - DISTURBANCE IN ATTENTION [None]
  - GASTRIC ULCER [None]
  - HAEMATEMESIS [None]
  - HELICOBACTER INFECTION [None]
